FAERS Safety Report 13911347 (Version 1)
Quarter: 2017Q3

REPORT INFORMATION
  Report Type: Spontaneous
  Country: US (occurrence: US)
  Receive Date: 20170828
  Receipt Date: 20170828
  Transmission Date: 20171127
  Serious: Yes (Life-Threatening)
  Sender: FDA-Public Use
  Company Number: PHHY2017US125553

PATIENT
  Age: 22 Year
  Sex: Female

DRUGS (2)
  1. DOXYCYCLINE. [Suspect]
     Active Substance: DOXYCYCLINE
     Indication: OEDEMA PERIPHERAL
  2. DOXYCYCLINE. [Suspect]
     Active Substance: DOXYCYCLINE
     Indication: URTICARIA
     Route: 065

REACTIONS (7)
  - Blood albumin decreased [Unknown]
  - Hypereosinophilic syndrome [Unknown]
  - Eosinophilic pneumonia [Unknown]
  - Rash [Unknown]
  - Oedema [Unknown]
  - Respiratory distress [Recovering/Resolving]
  - Lung infiltration [Recovering/Resolving]
